FAERS Safety Report 4354520-9 (Version None)
Quarter: 2004Q2

REPORT INFORMATION
  Report Type: 
  Country: None (occurrence: None)
  Receive Date: 20040503
  Receipt Date: 20040426
  Transmission Date: 20050107
  Serious: Yes (Other)
  Sender: FDA-Public Use
  Company Number: 2004-03-2263

PATIENT
  Age: 47 Year
  Sex: Female
  Weight: 86.1834 kg

DRUGS (3)
  1. PEG-INTRON [Suspect]
     Indication: HEPATITIS C
     Dosage: 150 MCG QW SUBCUTANEOUS
     Route: 058
     Dates: start: 20040131, end: 20040327
  2. REBETOL [Suspect]
     Indication: HEPATITIS C
     Dosage: 600 MG BID ORAL
     Route: 048
     Dates: start: 20040131, end: 20040331
  3. ATARAX [Suspect]
     Indication: PRURITUS
     Dosage: 25 MG Q12H ORAL
     Route: 048
     Dates: start: 20040303, end: 20040331

REACTIONS (7)
  - APHASIA [None]
  - DYSPHEMIA [None]
  - INCOHERENT [None]
  - MEMORY IMPAIRMENT [None]
  - MENTAL DISORDER [None]
  - NERVOUS SYSTEM DISORDER [None]
  - PRURITUS [None]
